FAERS Safety Report 15355344 (Version 3)
Quarter: 2018Q4

REPORT INFORMATION
  Report Type: Spontaneous
  Country: FR (occurrence: FR)
  Receive Date: 20180906
  Receipt Date: 20181213
  Transmission Date: 20190204
  Serious: Yes (Hospitalization, Other)
  Sender: FDA-Public Use
  Company Number: FR-ROCHE-2180207

PATIENT
  Age: 75 Year
  Sex: Female
  Weight: 50 kg

DRUGS (23)
  1. OMEPRAZOLE. [Concomitant]
     Active Substance: OMEPRAZOLE
     Indication: PRODUCT USED FOR UNKNOWN INDICATION
     Dosage: 20 MG, QD
     Route: 065
  2. OMEPRAZOLE. [Concomitant]
     Active Substance: OMEPRAZOLE
     Dosage: 20 MG, QD
     Route: 065
  3. PREDNISONE. [Concomitant]
     Active Substance: PREDNISONE
     Indication: PRODUCT USED FOR UNKNOWN INDICATION
     Dosage: 5 MG, QD
     Route: 065
     Dates: start: 2001
  4. ASPIRIN. [Concomitant]
     Active Substance: ASPIRIN
     Indication: PRODUCT USE IN UNAPPROVED INDICATION
     Dosage: UNK
     Route: 065
  5. VITAMIN B12 [Concomitant]
     Active Substance: CYANOCOBALAMIN
     Dosage: UNK
     Route: 065
  6. SPIRONOLACTONE. [Concomitant]
     Active Substance: SPIRONOLACTONE
     Indication: PRODUCT USED FOR UNKNOWN INDICATION
     Dosage: 50 MG, QD
     Route: 065
     Dates: start: 2010
  7. SOFOSBUVIR [Interacting]
     Active Substance: SOFOSBUVIR
     Indication: CHRONIC HEPATITIS C
     Route: 048
     Dates: start: 20140822, end: 201411
  8. FLUINDIONE [Concomitant]
     Active Substance: FLUINDIONE
     Indication: PRODUCT USED FOR UNKNOWN INDICATION
     Dosage: 10 MG, QD
     Route: 065
  9. LEVOTHYROXINE. [Concomitant]
     Active Substance: LEVOTHYROXINE
     Indication: PRODUCT USED FOR UNKNOWN INDICATION
     Dosage: 100 UG, QD
     Route: 065
     Dates: start: 20100113
  10. ETANERCEPT [Concomitant]
     Active Substance: ETANERCEPT
     Indication: PRODUCT USED FOR UNKNOWN INDICATION
     Dosage: 50 MG, UNK
     Route: 065
     Dates: start: 200109
  11. MONOPROST [Concomitant]
     Active Substance: LATANOPROST
     Dosage: UNK
     Route: 065
  12. RIBAVIRIN. [Suspect]
     Active Substance: RIBAVIRIN
     Indication: CHRONIC HEPATITIS C
     Route: 048
     Dates: start: 20140819
  13. VITAMIN A [Concomitant]
     Active Substance: VITAMIN A
     Dosage: UNK
     Route: 065
  14. RIBAVIRIN. [Interacting]
     Active Substance: RIBAVIRIN
     Indication: ANTIVIRAL TREATMENT
     Dosage: 1000 MG/DAY?SECOND COURSE OF TREATMENT.
     Route: 048
     Dates: start: 20140822, end: 201411
  15. SOFOSBUVIR [Interacting]
     Active Substance: SOFOSBUVIR
     Indication: ANTIVIRAL TREATMENT
     Dosage: SECOND COURSE OF TREATMENT
     Route: 048
     Dates: start: 20140703, end: 20140703
  16. CHOLECALCIFEROL [Concomitant]
     Active Substance: CHOLECALCIFEROL
     Indication: PRODUCT USED FOR UNKNOWN INDICATION
     Route: 065
  17. BROMAZEPAM [Concomitant]
     Active Substance: BROMAZEPAM
     Indication: PRODUCT USED FOR UNKNOWN INDICATION
     Route: 065
  18. PREVISCAN (FRANCE) [Concomitant]
     Active Substance: FLUINDIONE
     Indication: CARDIAC DISORDER
     Dosage: UNK
     Route: 065
  19. AMIODARONE [Interacting]
     Active Substance: AMIODARONE
     Indication: ATRIAL FLUTTER
     Route: 065
     Dates: start: 20090717
  20. SIMEPREVIR [Interacting]
     Active Substance: SIMEPREVIR
     Indication: ANTIVIRAL TREATMENT
     Route: 065
  21. SIMEPREVIR [Interacting]
     Active Substance: SIMEPREVIR
     Indication: ANTIVIRAL TREATMENT
  22. DACUDOSES [Concomitant]
     Active Substance: BORIC ACID\SODIUM BORATE
     Dosage: UNK
     Route: 065
  23. IDEOS [Concomitant]
     Active Substance: CALCIUM CARBONATE\CHOLECALCIFEROL
     Dosage: UNK
     Route: 065

REACTIONS (7)
  - Bradycardia [Recovered/Resolved]
  - Hypotension [Recovered/Resolved]
  - Sinoatrial block [Unknown]
  - Sinus node dysfunction [Recovered/Resolved]
  - Syncope [Unknown]
  - Sinus bradycardia [Recovered/Resolved]
  - Drug interaction [Unknown]

NARRATIVE: CASE EVENT DATE: 201407
